FAERS Safety Report 17811406 (Version 1)
Quarter: 2020Q2

REPORT INFORMATION
  Report Type: Spontaneous
  Country: US (occurrence: US)
  Receive Date: 20200521
  Receipt Date: 20200521
  Transmission Date: 20200714
  Serious: No
  Sender: FDA-Public Use
  Company Number: US-PFIZER INC-2020200211

PATIENT
  Age: 62 Year
  Sex: Female

DRUGS (1)
  1. IBRANCE [Suspect]
     Active Substance: PALBOCICLIB
     Dosage: 100 MG, CYCLIC (1 TABLET DAILY 21 DAYS ON 7 DAYS OFF)
     Route: 048
     Dates: start: 20190219

REACTIONS (3)
  - Alopecia [Unknown]
  - Fatigue [Unknown]
  - Hot flush [Unknown]
